FAERS Safety Report 8605455-4 (Version None)
Quarter: 2012Q3

REPORT INFORMATION
  Report Type: 
  Country: None (occurrence: None)
  Receive Date: 20120820
  Receipt Date: 20120810
  Transmission Date: 20120928
  Serious: Yes (Hospitalization)
  Sender: FDA-Public Use
  Company Number: US-ASTRAZENECA-2010SE05832

PATIENT
  Age: 620 Month
  Sex: Female
  Weight: 90.7 kg

DRUGS (5)
  1. SYMBICORT [Suspect]
     Dosage: 160/4.5 UG 2 PUFFS IN AM
     Route: 055
     Dates: start: 20100101
  2. UNKNOWN BP MED [Concomitant]
  3. SYMBICORT [Suspect]
     Indication: CHRONIC OBSTRUCTIVE PULMONARY DISEASE
     Dosage: 160/4.5 UG 2 PUFFS IN AM AND 2 PUFFS IN PM
     Route: 055
     Dates: start: 20080101, end: 20100101
  4. SINGULAIR [Concomitant]
  5. DETROL [Concomitant]

REACTIONS (4)
  - CHEST DISCOMFORT [None]
  - INTENTIONAL DRUG MISUSE [None]
  - DRUG DOSE OMISSION [None]
  - DYSPNOEA [None]
